FAERS Safety Report 6449972-4 (Version None)
Quarter: 2009Q4

REPORT INFORMATION
  Report Type: 
  Country: None (occurrence: None)
  Receive Date: 20091120
  Receipt Date: 20091120
  Transmission Date: 20100525
  Serious: Yes (Other)
  Sender: FDA-Public Use
  Company Number: None

PATIENT
  Age: 28 Year
  Sex: Female
  Weight: 39.4629 kg

DRUGS (2)
  1. ABILIFY [Suspect]
     Indication: DEPRESSION
     Dosage: 2 MG ONE PILL A DAY
     Dates: start: 20091116, end: 20091117
  2. ABILIFY [Suspect]
     Indication: DEPRESSION
     Dosage: 2 MG ONE PILL A DAY
     Dates: start: 20091116, end: 20091117

REACTIONS (7)
  - ANGER [None]
  - HALLUCINATION, VISUAL [None]
  - HEADACHE [None]
  - INSOMNIA [None]
  - SELF INJURIOUS BEHAVIOUR [None]
  - TREMOR [None]
  - VOMITING [None]
